FAERS Safety Report 5027749-4 (Version None)
Quarter: 2006Q2

REPORT INFORMATION
  Report Type: 
  Country: None (occurrence: None)
  Receive Date: 20060428
  Receipt Date: 20060227
  Transmission Date: 20061013
  Serious: Yes (Death)
  Sender: FDA-Public Use
  Company Number: COT_0405_2006

PATIENT
  Age: 18 Year
  Sex: Male
  Weight: 65.7716 kg

DRUGS (7)
  1. VENTAVIS [Suspect]
     Indication: PULMONARY HYPERTENSION
     Dosage: 7.5 MCG 6XD IH
     Route: 055
     Dates: start: 20050806
  2. SILDENAFIL [Concomitant]
  3. DIGOXIN [Concomitant]
  4. POTASSIUM [Concomitant]
  5. COUMADIN [Concomitant]
  6. LASIX [Concomitant]
  7. ADVAIR DISKUS 100/50 [Concomitant]

REACTIONS (2)
  - CONDITION AGGRAVATED [None]
  - PULMONARY HYPERTENSION [None]
